FAERS Safety Report 22096856 (Version 1)
Quarter: 2023Q1

REPORT INFORMATION
  Report Type: Spontaneous
  Country: US (occurrence: US)
  Receive Date: 20230315
  Receipt Date: 20230315
  Transmission Date: 20230417
  Serious: No
  Sender: FDA-Public Use
  Company Number: US-ASTELLAS-2022US043080

PATIENT
  Age: 81 Year
  Sex: Female

DRUGS (1)
  1. CRESEMBA [Suspect]
     Active Substance: ISAVUCONAZONIUM SULFATE
     Indication: Coccidioidomycosis
     Dosage: 2 DF (2 CAPSULES), ONCE DAILY
     Route: 048
     Dates: start: 202209

REACTIONS (5)
  - Hypersensitivity [Unknown]
  - Decreased appetite [Unknown]
  - Headache [Unknown]
  - Nausea [Unknown]
  - Off label use [Unknown]

NARRATIVE: CASE EVENT DATE: 20220901
